FAERS Safety Report 7094509-2 (Version None)
Quarter: 2010Q4

REPORT INFORMATION
  Report Type: 
  Country: None (occurrence: None)
  Receive Date: 20101110
  Receipt Date: 20101104
  Transmission Date: 20110411
  Serious: Yes (Life-Threatening, Hospitalization, Other)
  Sender: FDA-Public Use
  Company Number: PHHY2010CA67933

PATIENT
  Sex: Male

DRUGS (1)
  1. CLOZARIL [Suspect]
     Dosage: UNK
     Dates: start: 20100916

REACTIONS (7)
  - ABDOMINAL PAIN [None]
  - COLONIC OBSTRUCTION [None]
  - INFECTION [None]
  - INTESTINAL OBSTRUCTION [None]
  - NEUTROPHIL COUNT DECREASED [None]
  - SURGERY [None]
  - WHITE BLOOD CELL COUNT DECREASED [None]
